FAERS Safety Report 24250659 (Version 2)
Quarter: 2024Q4

REPORT INFORMATION
  Report Type: Spontaneous
  Country: US (occurrence: US)
  Receive Date: 20240826
  Receipt Date: 20241126
  Transmission Date: 20250115
  Serious: No
  Sender: ROCHE
  Company Number: US-ROCHE-10000064836

PATIENT
  Age: 6 Year
  Sex: Male
  Weight: 29.03 kg

DRUGS (1)
  1. HEMLIBRA [Suspect]
     Active Substance: EMICIZUMAB-KXWH
     Indication: Factor VIII deficiency
     Dosage: STRENGTH: 60 MG/0.4 ML
     Route: 058
     Dates: start: 201907

REACTIONS (2)
  - Skin laceration [Unknown]
  - Skin laceration [Unknown]

NARRATIVE: CASE EVENT DATE: 20241112
